FAERS Safety Report 8477400 (Version 10)
Quarter: 2013Q2

REPORT INFORMATION
  Report Type: Spontaneous
  Country: GB (occurrence: GB)
  Receive Date: 20120327
  Receipt Date: 20130513
  Transmission Date: 20140414
  Serious: Yes (Other)
  Sender: FDA-Public Use
  Company Number: GB-US-EMD SERONO, INC.-7120631

PATIENT
  Sex: Female
  Weight: 55 kg

DRUGS (4)
  1. REBIF [Suspect]
     Indication: MULTIPLE SCLEROSIS
     Route: 058
     Dates: start: 2005
  2. AMLODIPINE [Concomitant]
     Indication: PRODUCT USED FOR UNKNOWN INDICATION
  3. LISINOPRIL [Concomitant]
     Indication: PRODUCT USED FOR UNKNOWN INDICATION
  4. BIFONAZOLE [Concomitant]
     Indication: PRODUCT USED FOR UNKNOWN INDICATION

REACTIONS (8)
  - Renal failure acute [Unknown]
  - Posterior reversible encephalopathy syndrome [Unknown]
  - Thrombotic microangiopathy [Unknown]
  - Grand mal convulsion [Unknown]
  - Red cell fragmentation syndrome [Unknown]
  - Thrombotic thrombocytopenic purpura [Unknown]
  - Haemolytic uraemic syndrome [Recovering/Resolving]
  - Headache [Unknown]
